FAERS Safety Report 6502078-8 (Version None)
Quarter: 2009Q4

REPORT INFORMATION
  Report Type: 
  Country: None (occurrence: None)
  Receive Date: 20091214
  Receipt Date: 20091204
  Transmission Date: 20100525
  Serious: Yes (Other)
  Sender: FDA-Public Use
  Company Number: SPV1-2009-02396

PATIENT
  Age: 11 Year
  Sex: Male

DRUGS (2)
  1. ADDERALL XR 10 [Suspect]
     Indication: ATTENTION DEFICIT/HYPERACTIVITY DISORDER
     Dosage: 10 MG, 1X/DAY;QD, ORAL; 2.5 MG 1X/DAY;QD, ORAL
     Route: 048
     Dates: end: 20091101
  2. ADDERALL XR 10 [Suspect]
     Indication: ATTENTION DEFICIT/HYPERACTIVITY DISORDER
     Dosage: 10 MG, 1X/DAY;QD, ORAL; 2.5 MG 1X/DAY;QD, ORAL
     Route: 048
     Dates: start: 20090801

REACTIONS (2)
  - DEPRESSION [None]
  - SUICIDAL IDEATION [None]
